FAERS Safety Report 4755438-X (Version None)
Quarter: 2005Q3

REPORT INFORMATION
  Report Type: 
  Country: None (occurrence: None)
  Receive Date: 20050826
  Receipt Date: 20050826
  Transmission Date: 20060218
  Serious: Yes (Other)
  Sender: FDA-Public Use
  Company Number: None

PATIENT
  Sex: Male

DRUGS (1)
  1. COPPERTONE SPECTRA3 WATERBABIES, SPF 50 LOTION [Suspect]
     Indication: PROPHYLAXIS AGAINST SOLAR RADIATION
     Dosage: TOPICAL
     Route: 061
     Dates: end: 20050807

REACTIONS (3)
  - BLISTER [None]
  - BURNS FIRST DEGREE [None]
  - BURNS SECOND DEGREE [None]
